FAERS Safety Report 19721815 (Version 1)
Quarter: 2021Q3

REPORT INFORMATION
  Report Type: Spontaneous
  Country: US (occurrence: US)
  Receive Date: 20210819
  Receipt Date: 20210819
  Transmission Date: 20211014
  Serious: Yes (Other)
  Sender: FDA-Public Use
  Company Number: US-BAYER-2021-193283

PATIENT
  Age: 41 Year
  Sex: Female

DRUGS (1)
  1. ACETYLSALICYLIC ACID [Suspect]
     Active Substance: ASPIRIN
     Indication: HYPERCOAGULATION

REACTIONS (6)
  - Abortion [None]
  - Foetal placental thrombosis [None]
  - Cell death [None]
  - Foetal death [None]
  - Off label use [None]
  - Maternal exposure during pregnancy [None]
